FAERS Safety Report 13244551 (Version 1)
Quarter: 2017Q1

REPORT INFORMATION
  Report Type: Spontaneous
  Country: US (occurrence: US)
  Receive Date: 20170216
  Receipt Date: 20170216
  Transmission Date: 20170428
  Serious: No
  Sender: FDA-Public Use
  Company Number: US-JAZZ-2017-US-000603

PATIENT
  Sex: Female

DRUGS (30)
  1. MONTELUKAST SODIUM. [Concomitant]
     Active Substance: MONTELUKAST SODIUM
  2. ALDACTONE [Concomitant]
     Active Substance: SPIRONOLACTONE
  3. CYMBALTA [Concomitant]
     Active Substance: DULOXETINE HYDROCHLORIDE
  4. FENTANYL. [Concomitant]
     Active Substance: FENTANYL
  5. LEVOTHYROXINE. [Concomitant]
     Active Substance: LEVOTHYROXINE
  6. LYRICA [Concomitant]
     Active Substance: PREGABALIN
  7. ZETIA [Concomitant]
     Active Substance: EZETIMIBE
  8. METHOTREXATE. [Concomitant]
     Active Substance: METHOTREXATE
  9. XYREM [Suspect]
     Active Substance: SODIUM OXYBATE
     Indication: HYPERSOMNIA
     Dosage: 2.25G, BID
     Route: 048
     Dates: start: 200902, end: 2009
  10. XYREM [Suspect]
     Active Substance: SODIUM OXYBATE
     Dosage: 3.25G, QD, SECOND DOSE
     Route: 048
     Dates: start: 201601
  11. LOVASTATIN. [Concomitant]
     Active Substance: LOVASTATIN
  12. GEMFIBROZIL. [Concomitant]
     Active Substance: GEMFIBROZIL
  13. XYREM [Suspect]
     Active Substance: SODIUM OXYBATE
     Dosage: DOSE ADJUSTMENT
     Route: 048
     Dates: start: 2009, end: 2015
  14. ADDERALL [Concomitant]
     Active Substance: AMPHETAMINE ASPARTATE\AMPHETAMINE SULFATE\DEXTROAMPHETAMINE SACCHARATE\DEXTROAMPHETAMINE SULFATE
  15. ALLOPURINOL. [Concomitant]
     Active Substance: ALLOPURINOL
  16. PROVIGIL [Concomitant]
     Active Substance: MODAFINIL
  17. ATENOLOL. [Concomitant]
     Active Substance: ATENOLOL
  18. HYDROCODONE BITARTRATE AND ACETAMINOPHEN [Concomitant]
     Active Substance: ACETAMINOPHEN\HYDROCODONE BITARTRATE
  19. SOMA [Concomitant]
     Active Substance: CARISOPRODOL
  20. SONATA                             /00061001/ [Concomitant]
  21. XYREM [Suspect]
     Active Substance: SODIUM OXYBATE
     Dosage: 4.5G, QD, FIRST DOSE
     Route: 048
     Dates: start: 201601
  22. FLONASE                            /00908302/ [Concomitant]
     Active Substance: MOMETASONE FUROATE
  23. LASIX [Concomitant]
     Active Substance: FUROSEMIDE
  24. AMANTADINE [Concomitant]
     Active Substance: AMANTADINE
  25. METHOCARBAMOL. [Concomitant]
     Active Substance: METHOCARBAMOL
  26. DARVOCET [Concomitant]
     Active Substance: ACETAMINOPHEN\PROPOXYPHENE HYDROCHLORIDE
  27. SENOKOT [Concomitant]
     Active Substance: SENNOSIDES
  28. PLAQUENIL                          /00072602/ [Concomitant]
     Active Substance: HYDROXYCHLOROQUINE DIPHOSPHATE
  29. FLUOROMETHOLONE. [Concomitant]
     Active Substance: FLUOROMETHOLONE
  30. PREDNISONE. [Concomitant]
     Active Substance: PREDNISONE

REACTIONS (1)
  - Off label use [Unknown]
